FAERS Safety Report 7721836-5 (Version None)
Quarter: 2011Q3

REPORT INFORMATION
  Report Type: 
  Country: None (occurrence: None)
  Receive Date: 20110831
  Receipt Date: 20110826
  Transmission Date: 20111222
  Serious: Yes (Hospitalization, Other)
  Sender: FDA-Public Use
  Company Number: US-MERCK-1106USA02750

PATIENT
  Age: 57 Year
  Sex: Female

DRUGS (5)
  1. FOSAMAX [Suspect]
     Indication: OSTEOPOROSIS PROPHYLAXIS
     Route: 048
     Dates: start: 20040301, end: 20080701
  2. VITAMIN D (UNSPECIFIED) [Concomitant]
     Route: 065
     Dates: start: 20040101
  3. FOSAMAX [Suspect]
     Indication: OSTEOPENIA
     Route: 048
     Dates: start: 20040301, end: 20080701
  4. VITAMINS (UNSPECIFIED) [Concomitant]
     Route: 065
     Dates: start: 19710101
  5. CALCI-MIX [Concomitant]
     Route: 065
     Dates: start: 20040101

REACTIONS (14)
  - FEMUR FRACTURE [None]
  - BLOOD CHOLESTEROL INCREASED [None]
  - PEPTIC ULCER [None]
  - FALL [None]
  - DRUG INEFFECTIVE [None]
  - BREAST CANCER [None]
  - ARTHRALGIA [None]
  - HEPATIC CYST [None]
  - HYPERTENSION [None]
  - SPONDYLITIS [None]
  - SLEEP DISORDER [None]
  - IMPAIRED HEALING [None]
  - ADVERSE EVENT [None]
  - PAIN [None]
